FAERS Safety Report 22024959 (Version 5)
Quarter: 2024Q1

REPORT INFORMATION
  Report Type: Spontaneous
  Country: US (occurrence: US)
  Receive Date: 20230223
  Receipt Date: 20240203
  Transmission Date: 20240409
  Serious: Yes (Hospitalization, Other)
  Sender: FDA-Public Use
  Company Number: US-SA-SAC20230222001301

PATIENT
  Age: 69 Year
  Sex: Female

DRUGS (3)
  1. DUPIXENT [Suspect]
     Active Substance: DUPILUMAB
     Indication: Dermatitis atopic
     Dosage: 600 MG, 1X
     Route: 058
     Dates: start: 202209, end: 202209
  2. DUPIXENT [Suspect]
     Active Substance: DUPILUMAB
     Dosage: 300 MG, QOW
     Route: 058
     Dates: start: 2022
  3. IRON [Concomitant]
     Active Substance: IRON
     Dosage: FORMULATION-PILL

REACTIONS (7)
  - Chest pain [Unknown]
  - Volume blood decreased [Unknown]
  - Thrombosis [Unknown]
  - Dry skin [Unknown]
  - Skin depigmentation [Unknown]
  - Rash macular [Unknown]
  - Rash [Unknown]

NARRATIVE: CASE EVENT DATE: 20230901
